FAERS Safety Report 18178119 (Version 1)
Quarter: 2020Q3

REPORT INFORMATION
  Report Type: Spontaneous
  Country: IT (occurrence: IT)
  Receive Date: 20200821
  Receipt Date: 20200821
  Transmission Date: 20201103
  Serious: Yes (Other)
  Sender: FDA-Public Use
  Company Number: IT-AUROBINDO-AUR-APL-2014-07349

PATIENT
  Age: 32 Year
  Sex: Male

DRUGS (3)
  1. PAROXETINE 20MG [Suspect]
     Active Substance: PAROXETINE
     Indication: AGORAPHOBIA
     Dosage: 5 MILLIGRAM, ONCE A DAY
     Route: 065
  2. PAROXETINE 20MG [Suspect]
     Active Substance: PAROXETINE
     Dosage: 10 MILLIGRAM, ONCE A DAY
     Route: 065
  3. PAROXETINE 20MG [Suspect]
     Active Substance: PAROXETINE
     Indication: PANIC DISORDER
     Dosage: 20 MILLIGRAM, ONCE A DAY
     Route: 065

REACTIONS (16)
  - Headache [Recovering/Resolving]
  - Nervousness [Recovering/Resolving]
  - Depersonalisation/derealisation disorder [Recovering/Resolving]
  - Panic attack [Recovering/Resolving]
  - Mood swings [Recovering/Resolving]
  - Anxiety [Recovering/Resolving]
  - Toxicity to various agents [Unknown]
  - Asthenia [Recovering/Resolving]
  - Drug withdrawal syndrome [Recovering/Resolving]
  - Nausea [Recovering/Resolving]
  - Irritability [Recovering/Resolving]
  - Agitation [Recovering/Resolving]
  - Insomnia [Recovering/Resolving]
  - Increased appetite [Recovering/Resolving]
  - Weight increased [Recovering/Resolving]
  - Incorrect dose administered [Unknown]
